FAERS Safety Report 13226783 (Version 1)
Quarter: 2017Q1

REPORT INFORMATION
  Report Type: Report from Study
  Country: CA (occurrence: CA)
  Receive Date: 20170213
  Receipt Date: 20170213
  Transmission Date: 20170428
  Serious: Yes (Hospitalization, Other)
  Sender: FDA-Public Use
  Company Number: CA-009507513-1612CAN011182

PATIENT
  Age: 80 Year
  Sex: Male
  Weight: 56 kg

DRUGS (7)
  1. IVERMECTIN. [Suspect]
     Active Substance: IVERMECTIN
     Indication: ACARODERMATITIS
     Dosage: 12MG QD PO ON 1, 2, 8, 9 AND 15 OF DECEMBER 2016
     Route: 048
     Dates: start: 20161201, end: 20161215
  2. NORVASC [Concomitant]
     Active Substance: AMLODIPINE BESYLATE
     Indication: ARTERIOSCLEROSIS CORONARY ARTERY
     Dosage: 5 MG, QD
     Route: 048
     Dates: start: 201607
  3. METFORMIN [Concomitant]
     Active Substance: METFORMIN HYDROCHLORIDE
     Indication: DIABETES MELLITUS
     Dosage: 500 MG, BID
     Route: 048
     Dates: start: 201410
  4. SINEMET [Concomitant]
     Active Substance: CARBIDOPA\LEVODOPA
     Indication: PARKINSON^S DISEASE
     Dosage: STRENGTH:100/25 UNIT NOT REPORTED, 4.5 UNIT NOT REPORTED, TID
     Route: 048
     Dates: start: 201410
  5. LIPICOR [Concomitant]
     Indication: DYSLIPIDAEMIA
     Dosage: 10 MG, QD
     Route: 048
     Dates: start: 201610
  6. LIPICOR [Concomitant]
     Dosage: 10 MG, QD
     Route: 048
     Dates: start: 201410
  7. ASPIRIN. [Concomitant]
     Active Substance: ASPIRIN
     Indication: ARTERIOSCLEROSIS CORONARY ARTERY
     Dosage: 80 MG, QD
     Route: 048
     Dates: start: 201410

REACTIONS (2)
  - Rectal haemorrhage [Unknown]
  - Lower gastrointestinal haemorrhage [Unknown]

NARRATIVE: CASE EVENT DATE: 20161218
